FAERS Safety Report 26185334 (Version 1)
Quarter: 2025Q4

REPORT INFORMATION
  Report Type: Spontaneous
  Country: US (occurrence: US)
  Receive Date: 20251222
  Receipt Date: 20251222
  Transmission Date: 20260117
  Serious: Yes (Other)
  Sender: TEVA
  Company Number: US-TEVA-VS-3403658

PATIENT
  Age: 46 Year
  Sex: Female

DRUGS (2)
  1. LETROZOLE [Suspect]
     Active Substance: LETROZOLE
     Indication: Infertility
     Route: 065
  2. CLOMIPHENE [Suspect]
     Active Substance: CLOMIPHENE
     Indication: Infertility
     Route: 065

REACTIONS (2)
  - Drug ineffective [Unknown]
  - Hypertriglyceridaemia [Unknown]
